FAERS Safety Report 14987153 (Version 1)
Quarter: 2018Q2

REPORT INFORMATION
  Report Type: Spontaneous
  Country: DE (occurrence: DE)
  Receive Date: 20180608
  Receipt Date: 20180608
  Transmission Date: 20180711
  Serious: Yes (Hospitalization)
  Sender: FDA-Public Use
  Company Number: DE-TEVA-2018-DE-903029

PATIENT
  Age: 79 Year
  Sex: Male
  Weight: 80 kg

DRUGS (13)
  1. VIANI [Concomitant]
     Active Substance: FLUTICASONE PROPIONATE\SALMETEROL XINAFOATE
     Dosage: 50|250, 1-0-1
     Route: 048
  2. APIDRA [Concomitant]
     Active Substance: INSULIN GLULISINE
     Route: 058
  3. SIMVASTATIN. [Concomitant]
     Active Substance: SIMVASTATIN
     Dosage: 0-0-1
     Route: 048
  4. SPIRIVA [Concomitant]
     Active Substance: TIOTROPIUM BROMIDE MONOHYDRATE
     Dosage: 1-0-0
     Route: 048
  5. IBUPROFEN. [Suspect]
     Active Substance: IBUPROFEN
     Route: 048
  6. XARELTO [Suspect]
     Active Substance: RIVAROXABAN
     Dosage: 1-0-0
     Route: 048
  7. PREGABALIN. [Concomitant]
     Active Substance: PREGABALIN
     Dosage: 1-0-0
     Route: 048
  8. SPIRONOLACTON [Concomitant]
     Active Substance: SPIRONOLACTONE
     Dosage: 1/2-0-0
     Route: 048
  9. PANTOPRAZOL [Concomitant]
     Active Substance: PANTOPRAZOLE SODIUM
     Dosage: 1-0-0
     Route: 048
  10. ASPIRIN. [Concomitant]
     Active Substance: ASPIRIN
     Dosage: 1-0-0
     Route: 048
  11. CITALOPRAM [Concomitant]
     Active Substance: CITALOPRAM HYDROBROMIDE
     Dosage: 1-0-0
     Route: 048
  12. TORASEMID [Concomitant]
     Active Substance: TORSEMIDE
     Dosage: 1-0-0
     Route: 048
  13. LANTUS [Concomitant]
     Active Substance: INSULIN GLARGINE
     Dosage: 0-0-1
     Route: 058

REACTIONS (5)
  - Wrong drug administered [Unknown]
  - Haematoma [Unknown]
  - Extra dose administered [Unknown]
  - Pain [Unknown]
  - Accidental overdose [Unknown]

NARRATIVE: CASE EVENT DATE: 20170108
